FAERS Safety Report 4588398-5 (Version None)
Quarter: 2005Q1

REPORT INFORMATION
  Report Type: 
  Country: None (occurrence: None)
  Receive Date: 20050222
  Receipt Date: 20040706
  Transmission Date: 20050727
  Serious: No
  Sender: FDA-Public Use
  Company Number: US-BRISTOL-MYERS SQUIBB COMPANY-12633251

PATIENT
  Age: 54 Year
  Sex: Female
  Weight: 49 kg

DRUGS (2)
  1. BICNU [Suspect]
     Indication: NEOPLASM
     Dates: start: 20040402, end: 20040402
  2. DECADRON [Concomitant]

REACTIONS (1)
  - PLATELET COUNT DECREASED [None]
